FAERS Safety Report 5770987-3 (Version None)
Quarter: 2008Q2

REPORT INFORMATION
  Report Type: 
  Country: None (occurrence: None)
  Receive Date: 20080613
  Receipt Date: 20080523
  Transmission Date: 20081010
  Serious: Yes (Other)
  Sender: FDA-Public Use
  Company Number: US-ABBOTT-08P-163-0453137-00

PATIENT
  Sex: Male

DRUGS (2)
  1. HUMIRA [Suspect]
     Indication: COLITIS ULCERATIVE
     Route: 058
     Dates: start: 20080509, end: 20080509
  2. HUMIRA [Suspect]
     Route: 058
     Dates: start: 20080523

REACTIONS (2)
  - LOWER LIMB FRACTURE [None]
  - WOUND DRAINAGE [None]
